FAERS Safety Report 12365574 (Version 2)
Quarter: 2016Q2

REPORT INFORMATION
  Report Type: Report from Study
  Country: CA (occurrence: CA)
  Receive Date: 20160512
  Receipt Date: 20160613
  Transmission Date: 20160815
  Serious: Yes (Other)
  Sender: FDA-Public Use
  Company Number: CA-AMGEN-CANSL2016058971

PATIENT
  Age: 53 Year
  Sex: Male

DRUGS (1)
  1. REPATHA [Suspect]
     Active Substance: EVOLOCUMAB
     Indication: PRODUCT USED FOR UNKNOWN INDICATION
     Dosage: 140 MG/1 ML, UNK
     Route: 065
     Dates: start: 20160418

REACTIONS (8)
  - Pain in extremity [Unknown]
  - Abdominal discomfort [Unknown]
  - Hyperchlorhydria [Unknown]
  - Back pain [Unknown]
  - Arthralgia [Unknown]
  - Chest pain [Unknown]
  - Dyspnoea [Unknown]
  - Rhinorrhoea [Recovered/Resolved]

NARRATIVE: CASE EVENT DATE: 201604
